FAERS Safety Report 6282455-3 (Version None)
Quarter: 2009Q3

REPORT INFORMATION
  Report Type: 
  Country: None (occurrence: None)
  Receive Date: 20090721
  Receipt Date: 20090721
  Transmission Date: 20100115
  Serious: Yes (Hospitalization)
  Sender: FDA-Public Use
  Company Number: None

PATIENT
  Age: 45 Year
  Sex: Male
  Weight: 81 kg

DRUGS (1)
  1. DILAUDID-HP [Suspect]
     Indication: PROCEDURAL PAIN
     Dosage: 10 MG DAILY IV
     Route: 042
     Dates: start: 20090505, end: 20090505

REACTIONS (1)
  - RESPIRATORY DEPRESSION [None]
